FAERS Safety Report 11857747 (Version 1)
Quarter: 2015Q4

REPORT INFORMATION
  Report Type: Spontaneous
  Country: US (occurrence: None)
  Receive Date: 20151221
  Receipt Date: 20151221
  Transmission Date: 20160305
  Serious: Yes (Other)
  Sender: FDA-Public Use
  Company Number: None

PATIENT
  Age: 61 Year
  Sex: Female

DRUGS (1)
  1. HUMIRA [Suspect]
     Active Substance: ADALIMUMAB
     Indication: PSORIATIC ARTHROPATHY
     Route: 058
     Dates: start: 20150305, end: 20151201

REACTIONS (5)
  - Arthralgia [None]
  - Drug ineffective [None]
  - Peripheral swelling [None]
  - Condition aggravated [None]
  - Musculoskeletal stiffness [None]

NARRATIVE: CASE EVENT DATE: 20151201
